FAERS Safety Report 6631037-X (Version None)
Quarter: 2010Q1

REPORT INFORMATION
  Report Type: 
  Country: None (occurrence: None)
  Receive Date: 20100309
  Receipt Date: 20100227
  Transmission Date: 20100710
  Serious: Yes (Hospitalization)
  Sender: FDA-Public Use
  Company Number: 2010US000710

PATIENT
  Age: 61 Year
  Sex: Female

DRUGS (7)
  1. VESICARE [Suspect]
     Indication: POLLAKIURIA
     Dosage: UNK, ORAL
     Route: 048
  2. SYNTHROID [Concomitant]
  3. SIMVASTATIN [Concomitant]
  4. ESTRATEST H.S. [Concomitant]
  5. BUPROPION HYDROCHLORIDE [Concomitant]
  6. VITAMIN D NOS        (VITAMIN D NOS) [Concomitant]
  7. CRANBERRY POWDER CAPSULES  (CRANBERRY POWDER CAPSULES) CAPSULE [Concomitant]

REACTIONS (2)
  - GASTROOESOPHAGEAL REFLUX DISEASE [None]
  - OESOPHAGEAL SPASM [None]
